FAERS Safety Report 9467919 (Version 1)
Quarter: 2013Q3

REPORT INFORMATION
  Report Type: Spontaneous
  Country: BR (occurrence: BR)
  Receive Date: 20130821
  Receipt Date: 20130821
  Transmission Date: 20140515
  Serious: Yes (Hospitalization)
  Sender: FDA-Public Use
  Company Number: BR-PFIZER INC-2013239886

PATIENT
  Age: 53 Year
  Sex: Male
  Weight: 98 kg

DRUGS (4)
  1. LIPITOR [Suspect]
     Indication: BLOOD CHOLESTEROL ABNORMAL
     Dosage: 40 MG (ONE TABLET), 1X/DAY
     Route: 048
     Dates: start: 20130723
  2. AMLODIPINE [Concomitant]
     Indication: BLOOD PRESSURE ABNORMAL
     Dosage: 5 MG (ONE TABLET), 2X/DAY
     Dates: start: 201306
  3. ATENOLOL [Concomitant]
     Dosage: 25 MG (ONE TABLET), 2X/DAY
     Dates: start: 201306
  4. LASIX [Concomitant]
     Dosage: 40 MG (ONE TABLET), 1X/DAY
     Dates: start: 201308

REACTIONS (1)
  - Cardiovascular disorder [Unknown]
